FAERS Safety Report 12700417 (Version 2)
Quarter: 2017Q3

REPORT INFORMATION
  Report Type: Spontaneous
  Country: US (occurrence: US)
  Receive Date: 20160830
  Receipt Date: 20170829
  Transmission Date: 20171127
  Serious: No
  Sender: FDA-Public Use
  Company Number: US-SA-2016SA144373

PATIENT
  Age: 64 Year
  Sex: Female
  Weight: 82.7 kg

DRUGS (1)
  1. FABRAZYME [Suspect]
     Active Substance: AGALSIDASE BETA
     Indication: FABRY^S DISEASE
     Route: 042
     Dates: start: 2011

REACTIONS (1)
  - Urinary tract infection [Recovered/Resolved]

NARRATIVE: CASE EVENT DATE: 20160718
